FAERS Safety Report 18794474 (Version 1)
Quarter: 2021Q1

REPORT INFORMATION
  Report Type: Spontaneous
  Country: US (occurrence: US)
  Receive Date: 20210126
  Receipt Date: 20210126
  Transmission Date: 20210419
  Serious: Yes (Hospitalization)
  Sender: FDA-Public Use
  Company Number: None

PATIENT
  Age: 75 Year
  Sex: Female
  Weight: 72.6 kg

DRUGS (17)
  1. ALBUTEROL INHALER [Concomitant]
     Active Substance: ALBUTEROL
  2. CETIRZINE HYDROCHLORIDE [Concomitant]
  3. ATORVASTATIN [Concomitant]
     Active Substance: ATORVASTATIN
  4. BACLOFEN. [Concomitant]
     Active Substance: BACLOFEN
  5. LEVALBUT NEBULIZER [Concomitant]
  6. LEVOTHYROXINE. [Concomitant]
     Active Substance: LEVOTHYROXINE
  7. FERROUS SULFATE. [Concomitant]
     Active Substance: FERROUS SULFATE
  8. PREDNISONE. [Concomitant]
     Active Substance: PREDNISONE
  9. ALIMTA [Suspect]
     Active Substance: PEMETREXED DISODIUM
     Dates: end: 20210105
  10. AMLODIPINE [Concomitant]
     Active Substance: AMLODIPINE BESYLATE
  11. FLUOXETINE [Concomitant]
     Active Substance: FLUOXETINE HYDROCHLORIDE
  12. LOSARTAN. [Concomitant]
     Active Substance: LOSARTAN
  13. OMEPRAZOLE. [Concomitant]
     Active Substance: OMEPRAZOLE
  14. SPIRIVA CAP [Concomitant]
  15. ALENDRONATE [Concomitant]
     Active Substance: ALENDRONATE SODIUM
  16. CARBOPLATIN. [Suspect]
     Active Substance: CARBOPLATIN
     Dates: end: 20210105
  17. IRON [Concomitant]
     Active Substance: IRON

REACTIONS (9)
  - Rash [None]
  - Neutropenia [None]
  - Contusion [None]
  - Anaemia [None]
  - Blood potassium decreased [None]
  - Pancytopenia [None]
  - Blood electrolytes abnormal [None]
  - Diarrhoea [None]
  - Vomiting [None]

NARRATIVE: CASE EVENT DATE: 20210116
